FAERS Safety Report 19812770 (Version 6)
Quarter: 2021Q4

REPORT INFORMATION
  Report Type: Spontaneous
  Country: JP (occurrence: JP)
  Receive Date: 20210910
  Receipt Date: 20211206
  Transmission Date: 20220303
  Serious: Yes (Other)
  Sender: FDA-Public Use
  Company Number: JP-GLAXOSMITHKLINE-JP2021JPN191057

PATIENT
  Age: 35 Year
  Sex: Female
  Weight: 62.3 kg

DRUGS (25)
  1. LAMICTAL [Suspect]
     Active Substance: LAMOTRIGINE
     Indication: Bipolar II disorder
     Dosage: 25 MG, QD
     Dates: start: 20210705, end: 20210718
  2. LAMICTAL [Suspect]
     Active Substance: LAMOTRIGINE
     Indication: Depressive symptom
     Dosage: 50 MG, QD
     Dates: start: 20210719, end: 20210801
  3. LAMICTAL [Suspect]
     Active Substance: LAMOTRIGINE
     Dosage: 75 MG, QD
     Dates: start: 20210802, end: 20210809
  4. LAMICTAL [Suspect]
     Active Substance: LAMOTRIGINE
     Dosage: 100 MG, QD
     Dates: start: 20210810, end: 20210816
  5. LAMICTAL [Suspect]
     Active Substance: LAMOTRIGINE
     Dosage: 150 MG, 1D (100 IN THE MORNING, 50 IN THE EVENING)
     Dates: start: 20210817, end: 20210823
  6. LAMICTAL [Suspect]
     Active Substance: LAMOTRIGINE
     Dosage: 200 MG, 1D (100 IN THE MORNING, 100 IN THE EVENING)
     Dates: start: 20210824, end: 20210905
  7. LAMICTAL [Suspect]
     Active Substance: LAMOTRIGINE
     Dosage: 250 MG, 1D (100 IN THE MORNING, 150 IN THE EVENING)
     Dates: start: 20210906, end: 20210930
  8. LAMICTAL [Suspect]
     Active Substance: LAMOTRIGINE
     Dosage: 150 MG, 1D (100 IN THE MORNING, 50 IN THE EVENING)
     Dates: start: 20211001, end: 20211006
  9. LAMICTAL [Suspect]
     Active Substance: LAMOTRIGINE
     Dosage: 75 MG, 1D (50 IN THE MORNING, 25 IN THE EVENING)
     Dates: start: 20211007, end: 20211010
  10. LITHIUM CARBONATE [Concomitant]
     Active Substance: LITHIUM CARBONATE
     Indication: Feeling abnormal
     Dosage: 800 MG
     Route: 048
  11. QUETIAPINE FUMARATE [Concomitant]
     Active Substance: QUETIAPINE FUMARATE
     Indication: Feeling abnormal
     Dosage: 200 MG
     Route: 048
  12. QUETIAPINE FUMARATE [Concomitant]
     Active Substance: QUETIAPINE FUMARATE
     Indication: Insomnia
  13. LUNESTA TABLETS [Concomitant]
     Indication: Insomnia
     Dosage: 3 MG
     Route: 048
  14. NITRAZEPAM [Concomitant]
     Active Substance: NITRAZEPAM
     Indication: Insomnia
     Dosage: 10 MG
     Route: 048
  15. LEVOCETIRIZINE HYDROCHLORIDE [Concomitant]
     Active Substance: LEVOCETIRIZINE HYDROCHLORIDE
     Indication: Urticaria
     Dosage: 5 MG
     Route: 048
  16. RINDERON-VG OINTMENT [Concomitant]
     Indication: Acne
     Dosage: UNK, QD
     Route: 061
  17. THYRADIN-S POWDER [Concomitant]
     Indication: Hypothyroidism
     Dosage: 1 G
     Route: 048
  18. BIO-THREE COMBINATION TABLETS [Concomitant]
     Indication: Gastrointestinal disorder
     Dosage: 3 DF
     Route: 048
  19. MOSAPRIDE CITRATE [Concomitant]
     Active Substance: MOSAPRIDE CITRATE
     Indication: Abdominal discomfort
     Dosage: 15 MG
     Route: 048
  20. MONTELUKAST OD TABLET [Concomitant]
     Indication: Asthma
     Dosage: 10 MG
     Route: 048
  21. THEOPHYLLINE ANHYDROUS [Concomitant]
     Active Substance: THEOPHYLLINE ANHYDROUS
     Indication: Inhalation therapy
     Dosage: 400 MG
     Route: 048
  22. SPIRIVA RESPIMAT [Concomitant]
     Active Substance: TIOTROPIUM BROMIDE
     Indication: Asthma
     Dosage: 2.5 ?G, QD
     Route: 055
  23. FLUTICASONE PROPIONATE\FORMOTEROL FUMARATE [Concomitant]
     Active Substance: FLUTICASONE PROPIONATE\FORMOTEROL FUMARATE
     Indication: Asthma
     Dosage: 125 ?G, BID
     Route: 055
  24. SOLU-CORTEF [Concomitant]
     Active Substance: HYDROCORTISONE SODIUM SUCCINATE
     Dosage: 200 MG
  25. AMPICILLIN SODIUM\SULBACTAM SODIUM [Concomitant]
     Active Substance: AMPICILLIN SODIUM\SULBACTAM SODIUM
     Dosage: 6 G

REACTIONS (11)
  - Epiglottitis [Recovering/Resolving]
  - Laryngeal oedema [Recovering/Resolving]
  - Pruritus [Recovering/Resolving]
  - Dysuria [Recovering/Resolving]
  - Dysphonia [Recovering/Resolving]
  - Oropharyngeal pain [Recovering/Resolving]
  - Laryngeal inflammation [Recovering/Resolving]
  - Urticaria [Recovering/Resolving]
  - Acne [Recovering/Resolving]
  - Product use issue [Unknown]
  - Off label use [Unknown]

NARRATIVE: CASE EVENT DATE: 20210720
